FAERS Safety Report 5732996-X (Version None)
Quarter: 2008Q2

REPORT INFORMATION
  Report Type: 
  Country: None (occurrence: None)
  Receive Date: 20080509
  Receipt Date: 20080429
  Transmission Date: 20081010
  Serious: Yes (Death, Hospitalization, Other)
  Sender: FDA-Public Use
  Company Number: US-JNJFOC-20070700079

PATIENT
  Sex: Female

DRUGS (9)
  1. DOXIL [Suspect]
     Indication: PERITONEAL CARCINOMA
     Route: 042
  2. PAXIL [Concomitant]
     Dosage: EVERY HOUR OF SLEEP
     Route: 048
  3. CAPTOPRIL [Concomitant]
     Route: 048
  4. ASPIRIN [Concomitant]
     Route: 065
  5. LIPITOR [Concomitant]
     Route: 065
  6. SENNA [Concomitant]
     Route: 065
  7. HYDROCODONE BITARTRATE [Concomitant]
     Route: 065
  8. STOOL SOFTENER [Concomitant]
     Route: 065
  9. ATENOLOL [Concomitant]
     Route: 065

REACTIONS (3)
  - CARBOHYDRATE ANTIGEN 125 INCREASED [None]
  - OFF LABEL USE [None]
  - PERITONEAL CARCINOMA [None]
